FAERS Safety Report 10058294 (Version 3)
Quarter: 2014Q2

REPORT INFORMATION
  Report Type: Report from Study
  Country: US (occurrence: US)
  Receive Date: 20140404
  Receipt Date: 20140514
  Transmission Date: 20141212
  Serious: Yes (Hospitalization, Other)
  Sender: FDA-Public Use
  Company Number: US-JNJFOC-20140107211

PATIENT
  Age: 71 Year
  Sex: Female

DRUGS (16)
  1. XARELTO [Suspect]
     Indication: CORONARY ARTERY DISEASE
     Route: 048
     Dates: start: 20131109
  2. XARELTO [Suspect]
     Indication: CORONARY ARTERY DISEASE
     Route: 048
     Dates: start: 20130301, end: 20131107
  3. XARELTO [Suspect]
     Indication: CEREBROVASCULAR ACCIDENT PROPHYLAXIS
     Route: 048
     Dates: start: 20130301, end: 20131107
  4. XARELTO [Suspect]
     Indication: CEREBROVASCULAR ACCIDENT PROPHYLAXIS
     Route: 048
     Dates: start: 20131109
  5. XARELTO [Suspect]
     Indication: ATRIAL FIBRILLATION
     Route: 048
     Dates: start: 20131109
  6. XARELTO [Suspect]
     Indication: ATRIAL FIBRILLATION
     Route: 048
     Dates: start: 20130301, end: 20131107
  7. AVAPRO [Concomitant]
     Indication: HYPERTENSION
     Route: 048
  8. AMLODIPINE [Concomitant]
     Indication: BLOOD PRESSURE
     Route: 048
  9. CRESTOR [Concomitant]
     Indication: HYPERCHOLESTEROLAEMIA
     Dosage: EVERY OTHER DAY
     Route: 048
  10. CRESTOR [Concomitant]
     Indication: BLOOD PRESSURE
     Dosage: EVERY OTHER DAY
     Route: 048
  11. HYDROCHLOROTHIAZIDE [Concomitant]
     Indication: HYPERTENSION
     Dosage: EVERY OTHER DAY
     Route: 048
  12. PREDNISOLONE [Concomitant]
     Indication: EYE OPERATION
     Route: 065
     Dates: start: 20131108
  13. VIGAMOX [Concomitant]
     Indication: EYE OPERATION
     Route: 065
     Dates: start: 20131108
  14. CELEXA [Concomitant]
     Indication: DEPRESSION
     Route: 065
  15. LEVOXYL [Concomitant]
     Indication: THYROID DISORDER
     Route: 065
  16. NORVASC [Concomitant]
     Indication: BLOOD PRESSURE
     Route: 065

REACTIONS (5)
  - Retinal detachment [Recovered/Resolved]
  - Blindness unilateral [Recovered/Resolved with Sequelae]
  - Glaucoma [Recovered/Resolved with Sequelae]
  - Vitreous haemorrhage [Recovered/Resolved with Sequelae]
  - Adverse event [Not Recovered/Not Resolved]
